FAERS Safety Report 12124824 (Version 1)
Quarter: 2016Q1

REPORT INFORMATION
  Report Type: Spontaneous
  Country: US (occurrence: None)
  Receive Date: 20160226
  Receipt Date: 20160226
  Transmission Date: 20160526
  Serious: Yes (Hospitalization)
  Sender: FDA-Public Use
  Company Number: None

PATIENT
  Age: 83 Year
  Sex: Male
  Weight: 78.6 kg

DRUGS (1)
  1. WARFARIN [Suspect]
     Active Substance: WARFARIN
     Indication: ATRIAL FIBRILLATION
     Dosage: MG PO
     Route: 048
     Dates: start: 20150803, end: 20160212

REACTIONS (6)
  - Therapy change [None]
  - Urinary tract infection [None]
  - International normalised ratio increased [None]
  - International normalised ratio decreased [None]
  - Mental status changes [None]
  - Pneumonia [None]

NARRATIVE: CASE EVENT DATE: 20160208
